FAERS Safety Report 21558478 (Version 3)
Quarter: 2022Q4

REPORT INFORMATION
  Report Type: Report from Study
  Country: US (occurrence: None)
  Receive Date: 20221107
  Receipt Date: 20221114
  Transmission Date: 20230112
  Serious: Yes (Other)
  Sender: FDA-Public Use
  Company Number: US-ROCHE-3200162

PATIENT
  Age: 81 Year
  Sex: Female
  Weight: 86 kg

DRUGS (29)
  1. RANIBIZUMAB [Suspect]
     Active Substance: RANIBIZUMAB
     Indication: Diabetic retinal oedema
     Dosage: DOSE OF STUDY DRUG FIRST ADMINISTERED 10 MG/ML, DOSE LAST STUDY DRUG ADMIN PRIOR AE 10 MG/ML, START
     Route: 050
     Dates: start: 20210527
  2. RANIBIZUMAB [Suspect]
     Active Substance: RANIBIZUMAB
  3. RANIBIZUMAB [Suspect]
     Active Substance: RANIBIZUMAB
  4. RANIBIZUMAB [Suspect]
     Active Substance: RANIBIZUMAB
  5. RANIBIZUMAB [Suspect]
     Active Substance: RANIBIZUMAB
  6. RANIBIZUMAB [Suspect]
     Active Substance: RANIBIZUMAB
  7. ASPIRIN [Concomitant]
     Active Substance: ASPIRIN
  8. GABAPENTIN [Concomitant]
     Active Substance: GABAPENTIN
     Indication: Neuralgia
  9. LEVOTHYROXINE SODIUM [Concomitant]
     Active Substance: LEVOTHYROXINE SODIUM
     Indication: Hypothyroidism
  10. LISINOPRIL [Concomitant]
     Active Substance: LISINOPRIL
     Indication: Hypertension
  11. METOPROLOL TARTRATE [Concomitant]
     Active Substance: METOPROLOL TARTRATE
     Indication: Hypertension
  12. METFORMIN HYDROCHLORIDE [Concomitant]
     Active Substance: METFORMIN HYDROCHLORIDE
     Indication: Type 2 diabetes mellitus
  13. PIOGLITAZONE [Concomitant]
     Active Substance: PIOGLITAZONE
     Indication: Type 2 diabetes mellitus
  14. ROSUVASTATIN [Concomitant]
     Active Substance: ROSUVASTATIN
     Indication: Hyperlipidaemia
  15. MECLIZINE [Concomitant]
     Active Substance: MECLIZINE HYDROCHLORIDE
     Route: 048
     Dates: start: 20201124
  16. INSULIN GLARGINE [Concomitant]
     Active Substance: INSULIN GLARGINE
     Indication: Diabetes mellitus
     Dates: start: 20210106
  17. TRAMADOL [Concomitant]
     Active Substance: TRAMADOL
     Indication: Pain
     Dates: start: 20210205
  18. METHOTREXATE [Concomitant]
     Active Substance: METHOTREXATE
     Dates: start: 20190316
  19. FLECAINIDE [Concomitant]
     Active Substance: FLECAINIDE
     Dates: start: 20200717
  20. FLUTICASONE PROPIONATE [Concomitant]
     Active Substance: FLUTICASONE PROPIONATE
     Dates: start: 20210429
  21. NEXIUM [Concomitant]
     Active Substance: ESOMEPRAZOLE MAGNESIUM
     Dates: start: 20200727
  22. CLINDAMYCIN HYDROCHLORIDE [Concomitant]
     Active Substance: CLINDAMYCIN HYDROCHLORIDE
     Dates: start: 20210604
  23. KETOROLAC [Concomitant]
     Active Substance: KETOROLAC TROMETHAMINE
     Route: 047
     Dates: start: 20220401
  24. PREDNISOLONE ACETATE [Concomitant]
     Active Substance: PREDNISOLONE ACETATE
     Route: 047
     Dates: start: 20220824, end: 20220912
  25. PREDNISOLONE ACETATE [Concomitant]
     Active Substance: PREDNISOLONE ACETATE
     Route: 047
     Dates: start: 20221005
  26. ATROPINE SULFATE [Concomitant]
     Active Substance: ATROPINE SULFATE
     Route: 047
     Dates: start: 20220824
  27. ERYTHROMYCIN [Concomitant]
     Active Substance: ERYTHROMYCIN
     Route: 061
     Dates: start: 20220909, end: 20221102
  28. TYLENOL [Concomitant]
     Active Substance: ACETAMINOPHEN
     Indication: Pain
  29. MAXITROL [Concomitant]
     Active Substance: DEXAMETHASONE\NEOMYCIN SULFATE\POLYMYXIN B SULFATE
     Dosage: 3.5 MG/ML
     Route: 061
     Dates: start: 20220823, end: 20220906

REACTIONS (1)
  - Conjunctival retraction [Recovered/Resolved]

NARRATIVE: CASE EVENT DATE: 20220909
